FAERS Safety Report 11353597 (Version 1)
Quarter: 2015Q3

REPORT INFORMATION
  Report Type: Spontaneous
  Country: US (occurrence: US)
  Receive Date: 20150807
  Receipt Date: 20150807
  Transmission Date: 20151125
  Serious: No
  Sender: FDA-Public Use
  Company Number: US-JNJFOC-20150206799

PATIENT
  Age: 49 Year
  Sex: Female
  Weight: 72.58 kg

DRUGS (2)
  1. WOMENS ROGAINE UNSCENTED [Suspect]
     Active Substance: MINOXIDIL
     Indication: ALOPECIA
     Dosage: DOSAGE - HALF CAPFUL????INTERVAL - ONCE DAILY IN THE EVENING
     Route: 061
     Dates: start: 20141229, end: 20150204
  2. WOMENS ROGAINE UNSCENTED [Suspect]
     Active Substance: MINOXIDIL
     Route: 061

REACTIONS (7)
  - Vision blurred [Recovering/Resolving]
  - Headache [Recovering/Resolving]
  - Nausea [Recovering/Resolving]
  - Photophobia [Recovering/Resolving]
  - Ocular hyperaemia [Recovering/Resolving]
  - Alopecia [Recovering/Resolving]
  - Lacrimation increased [Recovering/Resolving]
